FAERS Safety Report 7442235-X (Version None)
Quarter: 2011Q2

REPORT INFORMATION
  Report Type: 
  Country: None (occurrence: None)
  Receive Date: 20110428
  Receipt Date: 20110412
  Transmission Date: 20111010
  Serious: No
  Sender: FDA-Public Use
  Company Number: US-B.I. PHARMACEUTICALS,INC./RIDGEFIELD-2011-BP-09310BP

PATIENT
  Age: 73 Year
  Sex: Female

DRUGS (5)
  1. SPIRIVA [Suspect]
     Indication: CHRONIC OBSTRUCTIVE PULMONARY DISEASE
     Dosage: 18 MCG
     Route: 055
     Dates: start: 20101101
  2. DIOVAN [Concomitant]
     Indication: HYPERTENSION
     Dosage: 160 MG
     Route: 048
     Dates: start: 20110101
  3. CLONAZEPAM [Concomitant]
     Indication: ANXIETY
     Dosage: 1 MG
     Route: 048
  4. ALBUTEROL [Concomitant]
     Indication: DYSPNOEA
     Dosage: 2 PUF
     Route: 055
  5. NEURONTIN [Concomitant]
     Indication: RESTLESS LEGS SYNDROME
     Dosage: 900 MG
     Route: 048
     Dates: start: 19900101

REACTIONS (1)
  - DRUG INEFFECTIVE [None]
